FAERS Safety Report 6643909-0 (Version None)
Quarter: 2010Q1

REPORT INFORMATION
  Report Type: 
  Country: None (occurrence: None)
  Receive Date: 20100322
  Receipt Date: 20100318
  Transmission Date: 20100710
  Serious: Yes (Death, Hospitalization)
  Sender: FDA-Public Use
  Company Number: BR-B.I. PHARMACEUTICALS,INC./RIDGEFIELD-2010-BR-00252BR

PATIENT
  Sex: Female

DRUGS (3)
  1. SPIRIVA RESPIMAT [Suspect]
     Indication: EMPHYSEMA
     Dosage: NR
     Dates: start: 20100101
  2. MIRTAZAPINA [Concomitant]
     Indication: DEPRESSION
     Dosage: NR
  3. AAS [Concomitant]
     Dosage: NR

REACTIONS (4)
  - ACUTE PRERENAL FAILURE [None]
  - DEHYDRATION [None]
  - GASTROENTERITIS [None]
  - RENAL FAILURE [None]
